FAERS Safety Report 6814676-2 (Version None)
Quarter: 2010Q2

REPORT INFORMATION
  Report Type: 
  Country: None (occurrence: None)
  Receive Date: 20100628
  Receipt Date: 20100621
  Transmission Date: 20101027
  Serious: Yes (Disabling, Other)
  Sender: FDA-Public Use
  Company Number: PHEH2007US11844

PATIENT
  Age: 88 Year
  Sex: Female

DRUGS (2)
  1. VISUDYNE [Suspect]
     Indication: MACULAR DEGENERATION
     Dosage: 15 MG DAILY IV
     Route: 042
     Dates: start: 20050101, end: 20050101
  2. VISUDYNE [Suspect]
     Indication: MACULAR DEGENERATION
     Dosage: 15 MG DAILY IV
     Route: 042
     Dates: start: 20060101, end: 20060101

REACTIONS (5)
  - BLINDNESS [None]
  - EYE LASER SCAR [None]
  - MACULOPATHY [None]
  - SCOTOMA [None]
  - VISUAL ACUITY REDUCED [None]
